FAERS Safety Report 7261746-3 (Version None)
Quarter: 2011Q1

REPORT INFORMATION
  Report Type: 
  Country: None (occurrence: None)
  Receive Date: 20110130
  Receipt Date: 20101025
  Transmission Date: 20110831
  Serious: No
  Sender: FDA-Public Use
  Company Number: US-ABBOTT-10P-163-0681218-00

PATIENT
  Weight: 92.616 kg

DRUGS (8)
  1. HUMIRA [Suspect]
     Dates: start: 20100601, end: 20100728
  2. VALTREX [Concomitant]
     Indication: GENITAL HERPES
     Dates: start: 20100920
  3. METHOTREXATE [Concomitant]
     Indication: RHEUMATOID ARTHRITIS
  4. HUMIRA [Suspect]
     Indication: RHEUMATOID ARTHRITIS
     Dates: start: 20100901, end: 20100920
  5. NAPROXEN [Concomitant]
     Indication: RHEUMATOID ARTHRITIS
  6. SULFASALAZINE [Concomitant]
     Indication: RHEUMATOID ARTHRITIS
  7. LEVOTHYROXINE SODIUM [Concomitant]
     Indication: GOITRE
  8. HYDROCODONE [Concomitant]
     Indication: HERPES ZOSTER
     Dates: start: 20100920

REACTIONS (5)
  - PNEUMONIA [None]
  - COUGH [None]
  - RASH [None]
  - PAIN [None]
  - HERPES ZOSTER [None]
